FAERS Safety Report 5443064-9 (Version None)
Quarter: 2007Q3

REPORT INFORMATION
  Report Type: 
  Country: None (occurrence: None)
  Receive Date: 20070827
  Receipt Date: 20070723
  Transmission Date: 20080115
  Serious: Yes (Death, Hospitalization)
  Sender: FDA-Public Use
  Company Number: WS1032-WS1038

PATIENT
  Age: 12 Year
  Sex: Female
  Weight: 50 kg

DRUGS (9)
  1. WINRHO SD [Suspect]
     Indication: THROMBOCYTOPENIA
     Dosage: 38 MCG/KG ONCE IV
     Route: 042
     Dates: start: 19960725, end: 19960725
  2. HYDROCORTISONE [Concomitant]
  3. PREDNISONE TAB [Concomitant]
  4. SOLU-MEDROL [Concomitant]
  5. CEFTRIAXONE [Concomitant]
  6. FUROSEMIDE [Concomitant]
  7. ZANTAC 150 [Concomitant]
  8. PROZAC [Concomitant]
  9. SUCRALFATE [Concomitant]

REACTIONS (10)
  - ANAEMIA [None]
  - HAEMODIALYSIS [None]
  - HAEMORRHAGE [None]
  - INTRAVASCULAR HAEMOLYSIS [None]
  - NATURAL KILLER-CELL LEUKAEMIA [None]
  - RENAL FAILURE [None]
  - RESPIRATORY FAILURE [None]
  - SPLENOMEGALY [None]
  - THROMBOCYTOPENIA [None]
  - WHITE BLOOD CELL COUNT INCREASED [None]
